FAERS Safety Report 14254718 (Version 1)
Quarter: 2017Q4

REPORT INFORMATION
  Report Type: Spontaneous
  Country: US (occurrence: US)
  Receive Date: 20171205
  Receipt Date: 20171205
  Transmission Date: 20180321
  Serious: No
  Sender: FDA-Public Use
  Company Number: None

PATIENT
  Age: 58 Year
  Sex: Female
  Weight: 56.25 kg

DRUGS (24)
  1. VITAMIN B12 [Concomitant]
     Active Substance: CYANOCOBALAMIN
  2. TOLTERODINE ER [Concomitant]
  3. ONZETRA [Concomitant]
     Active Substance: SUMATRIPTAN SUCCINATE
  4. PEPTIC-CARE ZC [Concomitant]
  5. ESTRACE [Concomitant]
     Active Substance: ESTRADIOL
  6. MAGNESIUM [Concomitant]
     Active Substance: MAGNESIUM
  7. ENZYMES [Concomitant]
  8. LORATIDINE [Concomitant]
     Active Substance: LORATADINE
  9. FYCOMPA [Concomitant]
     Active Substance: PERAMPANEL
  10. CICLOPIROZ OLAMINE [Concomitant]
  11. COMOLYN [Concomitant]
  12. LYRICA [Concomitant]
     Active Substance: PREGABALIN
  13. TRAZODONE [Concomitant]
     Active Substance: TRAZODONE HYDROCHLORIDE
  14. XIIDRA [Suspect]
     Active Substance: LIFITEGRAST
     Indication: DRY EYE
     Dosage: ?          QUANTITY:2 DROP(S);?
     Route: 047
     Dates: start: 20171129, end: 20171204
  15. PROLIA [Concomitant]
     Active Substance: DENOSUMAB
  16. BOTOX [Concomitant]
     Active Substance: ONABOTULINUMTOXINA
  17. FLUOCINONIDE. [Concomitant]
     Active Substance: FLUOCINONIDE
  18. CLOBETASOL PROPIONATE. [Concomitant]
     Active Substance: CLOBETASOL PROPIONATE
  19. ALLERGY SHOTS [Concomitant]
     Active Substance: UNSPECIFIED INGREDIENT
  20. PROBIOTIC [Concomitant]
     Active Substance: PROBIOTICS NOS
  21. NAPROXEN. [Concomitant]
     Active Substance: NAPROXEN
  22. ZYRTEC [Concomitant]
     Active Substance: CETIRIZINE HYDROCHLORIDE
  23. RIZATRIPTAN. [Concomitant]
     Active Substance: RIZATRIPTAN
  24. DYMISTA [Concomitant]
     Active Substance: AZELASTINE HYDROCHLORIDE\FLUTICASONE PROPIONATE

REACTIONS (2)
  - Eye pain [None]
  - Condition aggravated [None]

NARRATIVE: CASE EVENT DATE: 20171129
